FAERS Safety Report 21569361 (Version 1)
Quarter: 2022Q4

REPORT INFORMATION
  Report Type: Spontaneous
  Country: NL (occurrence: NL)
  Receive Date: 20221109
  Receipt Date: 20221109
  Transmission Date: 20230113
  Serious: Yes (Hospitalization)
  Sender: FDA-Public Use
  Company Number: None

PATIENT
  Sex: Male
  Weight: 87 kg

DRUGS (3)
  1. CAPECITABINE [Suspect]
     Active Substance: CAPECITABINE
     Indication: Rectal cancer
     Dosage: 150 MILLIGRAM DAILY; 1X A DAY,  CAPECITABINE TABLET FO 150MG / BRAND NAME NOT SPECIFIED
     Route: 065
     Dates: start: 20220906, end: 20221018
  2. OXALIPLATIN [Concomitant]
     Active Substance: OXALIPLATIN
     Indication: Product used for unknown indication
     Dosage: OXALIPLATIN INFOPL CONC 5MG/ML / BRAND NAME NOT SPECIFIED, THERAPY START DATE : ASKU , THERAPY END D
  3. BEVACIZUMAB [Concomitant]
     Active Substance: BEVACIZUMAB
     Indication: Product used for unknown indication
     Dosage: BEVACIZUMAB INFOPL CONC 25MG/ML / BRAND NAME NOT SPECIFIED, THERAPY START DATE : ASKU , THERAPY END

REACTIONS (1)
  - Mucosal inflammation [Not Recovered/Not Resolved]
